FAERS Safety Report 23086918 (Version 2)
Quarter: 2023Q4

REPORT INFORMATION
  Report Type: Report from Study
  Country: KR (occurrence: KR)
  Receive Date: 20231020
  Receipt Date: 20231201
  Transmission Date: 20240110
  Serious: Yes (Hospitalization, Other)
  Sender: FDA-Public Use
  Company Number: KR-BRISTOL-MYERS SQUIBB COMPANY-2023-146499

PATIENT
  Age: 52 Year
  Sex: Female

DRUGS (9)
  1. POMALYST [Suspect]
     Active Substance: POMALIDOMIDE
     Indication: Plasma cell myeloma
     Dosage: ON 06-JUL-2023, POMALYST CYCLE 2 DOSE DELAYED DUE TO HBV POSITIVE.ON 20-JUL-2023, RESTART C1 D15 POM
     Dates: start: 20230621, end: 20230726
  2. POMALYST [Suspect]
     Active Substance: POMALIDOMIDE
     Dosage: ON 06-JUL-2023, POMALYST CYCLE 2 DOSE DELAYED DUE TO HBV POSITIVE. ON 20-JUL-2023, RESTART C1 D15 PO
     Dates: start: 20230720
  3. DEXAMETHASONE [Suspect]
     Active Substance: DEXAMETHASONE
     Indication: Product used for unknown indication
     Dosage: 160 MG/CYCLE
  4. CYCLOPHOSPHAMIDE [Concomitant]
     Active Substance: CYCLOPHOSPHAMIDE
     Indication: Plasma cell myeloma
     Dosage: 6 TABLETS A DAY
     Route: 048
     Dates: start: 20230623
  5. ELIQUIS [Concomitant]
     Active Substance: APIXABAN
     Indication: Deep vein thrombosis
     Dosage: 6 TABLETS A DAY
     Route: 048
     Dates: start: 20210624
  6. FEBUXOSTAT [Concomitant]
     Active Substance: FEBUXOSTAT
     Indication: Prophylaxis
     Dosage: 6 TABLETS A DAY
     Route: 048
     Dates: start: 20220315
  7. DIACEREIN [Concomitant]
     Active Substance: DIACEREIN
     Dosage: 1 CAP
     Dates: start: 20220812, end: 20221110
  8. CICIBON [Concomitant]
     Dosage: 1 TAB
     Dates: start: 20210608
  9. MAGNES [Concomitant]
     Dosage: 1 TAB
     Dates: start: 20211013

REACTIONS (6)
  - Cellulitis [Recovered/Resolved]
  - Infective myositis [Recovered/Resolved]
  - Hepatitis B [Unknown]
  - Pyrexia [Unknown]
  - Joint swelling [Unknown]
  - Arthralgia [Unknown]

NARRATIVE: CASE EVENT DATE: 20230802
